FAERS Safety Report 8001811-6 (Version None)
Quarter: 2011Q4

REPORT INFORMATION
  Report Type: 
  Country: None (occurrence: None)
  Receive Date: 20111222
  Receipt Date: 20111208
  Transmission Date: 20120403
  Serious: Yes (Other)
  Sender: FDA-Public Use
  Company Number: US-ROCHE-783897

PATIENT
  Sex: Male
  Weight: 70.37 kg

DRUGS (2)
  1. ACCUTANE [Suspect]
     Dates: start: 20010601, end: 20010901
  2. ACCUTANE [Suspect]
     Indication: ACNE
     Route: 048
     Dates: start: 20000901, end: 20010201

REACTIONS (9)
  - INFLAMMATORY BOWEL DISEASE [None]
  - CROHN'S DISEASE [None]
  - COLITIS ULCERATIVE [None]
  - DRY SKIN [None]
  - ARTHRALGIA [None]
  - LIP DRY [None]
  - RASH PAPULAR [None]
  - ANXIETY [None]
  - IRRITABLE BOWEL SYNDROME [None]
